FAERS Safety Report 8411282-3 (Version None)
Quarter: 2012Q2

REPORT INFORMATION
  Report Type: 
  Country: None (occurrence: None)
  Receive Date: 20120605
  Receipt Date: 20120523
  Transmission Date: 20120825
  Serious: No
  Sender: FDA-Public Use
  Company Number: US-ASTRAZENECA-2010SE54233

PATIENT
  Age: 52 Year
  Sex: Female
  Weight: 86.2 kg

DRUGS (11)
  1. ZYRTEC [Concomitant]
     Indication: MULTIPLE ALLERGIES
  2. SIMVASTATIN [Concomitant]
     Indication: BLOOD CHOLESTEROL ABNORMAL
  3. REMIFEMIN [Concomitant]
  4. SYMBICORT [Suspect]
     Dosage: 160/4.5MCG ONE PUFF A DAY
     Route: 055
  5. SYMBICORT [Suspect]
     Indication: ASTHMA
     Dosage: 160/4.5MCG TWO PUFFS TWO TIMES A DAY
     Route: 055
  6. STOOL BUFFER [Concomitant]
  7. PROAIR HFA [Concomitant]
     Dosage: AS REQUIRED
  8. PROBIOTIC CAPSULE [Concomitant]
  9. NEXIUM [Suspect]
     Indication: GASTROOESOPHAGEAL REFLUX DISEASE
     Route: 048
  10. VITAMIN TAB [Concomitant]
  11. MIRALAX [Concomitant]

REACTIONS (4)
  - DYSPHONIA [None]
  - INTENTIONAL DRUG MISUSE [None]
  - ASPIRATION [None]
  - COUGH [None]
